FAERS Safety Report 10309896 (Version 1)
Quarter: 2014Q3

REPORT INFORMATION
  Report Type: Spontaneous
  Country: US (occurrence: None)
  Receive Date: 20140715
  Receipt Date: 20140715
  Transmission Date: 20150326
  Serious: Yes (Hospitalization)
  Sender: FDA-Public Use
  Company Number: None

PATIENT
  Age: 77 Year
  Sex: Male
  Weight: 84.4 kg

DRUGS (1)
  1. SUTENT [Suspect]
     Active Substance: SUNITINIB MALATE
     Dates: start: 20140620

REACTIONS (5)
  - Blood creatinine increased [None]
  - Vision blurred [None]
  - Blood potassium increased [None]
  - Fatigue [None]
  - Blood sodium decreased [None]

NARRATIVE: CASE EVENT DATE: 20140709
